FAERS Safety Report 6416473-9 (Version None)
Quarter: 2009Q4

REPORT INFORMATION
  Report Type: 
  Country: None (occurrence: None)
  Receive Date: 20091027
  Receipt Date: 20091014
  Transmission Date: 20100525
  Serious: Yes (Hospitalization, Other)
  Sender: FDA-Public Use
  Company Number: PHEH2009US13454

PATIENT
  Sex: Female
  Weight: 65 kg

DRUGS (5)
  1. EXJADE [Suspect]
     Indication: SICKLE CELL ANAEMIA WITH CRISIS
     Dosage: 1250 MG, QD
     Route: 048
     Dates: start: 20090722
  2. EXJADE [Suspect]
     Indication: IRON OVERLOAD
     Dosage: 1250 MG, QD
     Route: 048
     Dates: start: 20090101
  3. HYDROXYUREA [Concomitant]
     Indication: SICKLE CELL ANAEMIA
     Dosage: 500 MG, BID
     Route: 048
  4. FOLIC ACID [Concomitant]
     Indication: SICKLE CELL ANAEMIA
     Dosage: 1 MG, QD
     Route: 048
  5. OXYCONTIN [Concomitant]
     Indication: PAIN
     Dosage: 80 MG, Q12H

REACTIONS (4)
  - COLOSTOMY [None]
  - CONDITION AGGRAVATED [None]
  - INTESTINAL OBSTRUCTION [None]
  - SICKLE CELL ANAEMIA WITH CRISIS [None]
